FAERS Safety Report 10473731 (Version 3)
Quarter: 2015Q1

REPORT INFORMATION
  Report Type: Spontaneous
  Country: CH (occurrence: CH)
  Receive Date: 20140924
  Receipt Date: 20150107
  Transmission Date: 20150720
  Serious: Yes (Hospitalization)
  Sender: FDA-Public Use
  Company Number: CH-BRISTOL-MYERS SQUIBB COMPANY-21415799

PATIENT
  Age: 24 Year
  Sex: Female

DRUGS (10)
  1. LITHIUM [Concomitant]
     Active Substance: LITHIUM CARBONATE
     Dosage: 1125 MG, QD
     Route: 065
     Dates: start: 20140630
  2. TRUXAL [Concomitant]
     Active Substance: CHLORPROTHIXENE
     Indication: BORDERLINE PERSONALITY DISORDER
  3. LITHIUM [Concomitant]
     Active Substance: LITHIUM CARBONATE
     Indication: AFFECT LABILITY
     Dosage: 900 MG, QD
     Dates: start: 20140613
  4. TRUXAL [Concomitant]
     Active Substance: CHLORPROTHIXENE
     Indication: AFFECT LABILITY
  5. LYRICA [Concomitant]
     Active Substance: PREGABALIN
  6. ABILIFY [Suspect]
     Active Substance: ARIPIPRAZOLE
     Indication: AFFECT LABILITY
     Dosage: DOSE INCREASED TO 20MG/ DAY ON 14JUL2014
     Route: 048
     Dates: start: 20140709, end: 20140717
  7. NOZINAN [Concomitant]
     Active Substance: LEVOMEPROMAZINE
     Indication: AFFECT LABILITY
  8. VALIUM [Concomitant]
     Active Substance: DIAZEPAM
     Indication: MUSCLE SPASMS
     Dosage: 40 MG, QD
     Dates: start: 20140718, end: 20140728
  9. STILNOX [Concomitant]
     Active Substance: ZOLPIDEM TARTRATE
  10. FLUOXETINE [Concomitant]
     Active Substance: FLUOXETINE\FLUOXETINE HYDROCHLORIDE
     Indication: AFFECT LABILITY
     Dosage: DOSE REDUCED TO 60MG/D FROM 25JUL14
     Route: 048
     Dates: start: 20140613

REACTIONS (3)
  - Generalised tonic-clonic seizure [Recovered/Resolved]
  - Off label use [Unknown]
  - Antipsychotic drug level increased [Recovered/Resolved]

NARRATIVE: CASE EVENT DATE: 20140715
